FAERS Safety Report 8300805-0 (Version None)
Quarter: 2012Q2

REPORT INFORMATION
  Report Type: 
  Country: None (occurrence: None)
  Receive Date: 20120420
  Receipt Date: 20120418
  Transmission Date: 20120825
  Serious: Yes (Hospitalization, Other)
  Sender: FDA-Public Use
  Company Number: PHEH2010US03512

PATIENT
  Sex: Female

DRUGS (14)
  1. MORPHINE [Concomitant]
  2. PREVACID [Concomitant]
  3. ATIVAN [Concomitant]
  4. ZOFRAN [Concomitant]
  5. CIPROFLOXACIN [Concomitant]
  6. AREDIA [Suspect]
     Dosage: 90 MG, QMO
     Route: 042
  7. DECADRON [Concomitant]
  8. CELEBREX [Concomitant]
  9. ZOMETA [Suspect]
     Indication: BREAST CANCER METASTATIC
  10. ZOLOFT [Concomitant]
  11. HERCEPTIN [Concomitant]
  12. AMBIEN [Concomitant]
  13. ZOMETA [Suspect]
     Indication: NEOPLASM MALIGNANT
     Dosage: 4 MG, QMO
     Route: 042
     Dates: start: 20020501
  14. ZOMETA [Suspect]
     Indication: METASTASES TO BONE

REACTIONS (60)
  - PAIN [None]
  - INFECTION [None]
  - EXPOSED BONE IN JAW [None]
  - HYPERPLASIA [None]
  - ARTHRITIS [None]
  - CONTUSION [None]
  - METASTASES TO BONE [None]
  - CARDIOMEGALY [None]
  - BACK PAIN [None]
  - PARAESTHESIA [None]
  - ARTHRALGIA [None]
  - CHEST WALL CYST [None]
  - DEPRESSION [None]
  - URINARY TRACT INFECTION [None]
  - PNEUMONIA [None]
  - DEFORMITY [None]
  - PAIN IN JAW [None]
  - OROPHARYNGEAL BLISTERING [None]
  - GINGIVAL DISORDER [None]
  - NEUROPATHY PERIPHERAL [None]
  - CONFUSIONAL STATE [None]
  - INGROWING NAIL [None]
  - OEDEMA PERIPHERAL [None]
  - MUSCLE SPASMS [None]
  - ANXIETY [None]
  - WOUND [None]
  - BRONCHOSPASM [None]
  - OSTEOMYELITIS [None]
  - FACIAL PAIN [None]
  - INSOMNIA [None]
  - HEADACHE [None]
  - OROPHARYNGEAL PAIN [None]
  - JOINT STIFFNESS [None]
  - BURSITIS [None]
  - GINGIVAL ULCERATION [None]
  - INTERVERTEBRAL DISC DISORDER [None]
  - TINNITUS [None]
  - ABDOMINAL PAIN [None]
  - DIZZINESS [None]
  - SKIN BURNING SENSATION [None]
  - LIGAMENT SPRAIN [None]
  - OVERDOSE [None]
  - METASTASES TO LUNG [None]
  - GASTRITIS [None]
  - ORAL PAIN [None]
  - OSTEONECROSIS OF JAW [None]
  - DIARRHOEA [None]
  - CEREBRAL SMALL VESSEL ISCHAEMIC DISEASE [None]
  - LYMPHADENOPATHY [None]
  - SPINAL OSTEOARTHRITIS [None]
  - SPINAL CORD COMPRESSION [None]
  - UPPER RESPIRATORY TRACT INFECTION [None]
  - FALL [None]
  - IMPAIRED HEALING [None]
  - SWEAT GLAND INFECTION [None]
  - CHRONIC OBSTRUCTIVE PULMONARY DISEASE [None]
  - SEBORRHOEIC KERATOSIS [None]
  - INTERVERTEBRAL DISC PROTRUSION [None]
  - HYPOAESTHESIA [None]
  - HAEMATOMA [None]
